FAERS Safety Report 7313243-4 (Version None)
Quarter: 2011Q1

REPORT INFORMATION
  Report Type: 
  Country: None (occurrence: None)
  Receive Date: 20110216
  Receipt Date: 20110216
  Transmission Date: 20110831
  Serious: Yes (Other)
  Sender: FDA-Public Use
  Company Number: None

PATIENT
  Sex: Female
  Weight: 55.3388 kg

DRUGS (1)
  1. ENABLEX [Suspect]
     Indication: POLLAKIURIA
     Dosage: 15 MG QD PO
     Route: 048
     Dates: start: 20110112, end: 20110119

REACTIONS (17)
  - DRY THROAT [None]
  - SLEEP DISORDER [None]
  - STRESS [None]
  - DYSPEPSIA [None]
  - GASTROOESOPHAGEAL REFLUX DISEASE [None]
  - WEIGHT DECREASED [None]
  - ANXIETY [None]
  - DYSPHAGIA [None]
  - DRY MOUTH [None]
  - ABDOMINAL PAIN [None]
  - VISUAL IMPAIRMENT [None]
  - PRURITUS [None]
  - BURNING SENSATION [None]
  - DRY EYE [None]
  - CONSTIPATION [None]
  - ERUCTATION [None]
  - VEIN PAIN [None]
